FAERS Safety Report 16644802 (Version 1)
Quarter: 2019Q3

REPORT INFORMATION
  Report Type: Spontaneous
  Country: US (occurrence: US)
  Receive Date: 20190729
  Receipt Date: 20190729
  Transmission Date: 20191004
  Serious: No
  Sender: FDA-Public Use
  Company Number: US-PRINSTON PHARMACEUTICAL INC.-2019PRN00562

PATIENT
  Sex: Male

DRUGS (3)
  1. ROPINIROLE HYDROCHLORIDE. [Suspect]
     Active Substance: ROPINIROLE HYDROCHLORIDE
     Dosage: 3 MG
  2. ROPINIROLE HYDROCHLORIDE. [Suspect]
     Active Substance: ROPINIROLE HYDROCHLORIDE
     Indication: RESTLESS LEGS SYNDROME
     Dosage: 1 MG
     Dates: start: 2004
  3. ROPINIROLE HYDROCHLORIDE. [Suspect]
     Active Substance: ROPINIROLE HYDROCHLORIDE
     Dosage: 2 MG

REACTIONS (2)
  - Drug ineffective [Recovered/Resolved]
  - Drug tolerance [Unknown]
